FAERS Safety Report 25300578 (Version 1)
Quarter: 2025Q2

REPORT INFORMATION
  Report Type: Spontaneous
  Country: CN (occurrence: CN)
  Receive Date: 20250512
  Receipt Date: 20250512
  Transmission Date: 20250716
  Serious: Yes (Hospitalization, Other)
  Sender: ELI LILLY AND COMPANY
  Company Number: CN-ELI_LILLY_AND_COMPANY-CN202505002610

PATIENT
  Age: 72 Year
  Sex: Male
  Weight: 70 kg

DRUGS (1)
  1. HUMALOG MIX50/50 [Suspect]
     Active Substance: INSULIN LISPRO
     Indication: Diabetes mellitus
     Dosage: 24 U, BID
     Route: 058
     Dates: start: 20250419, end: 20250419

REACTIONS (6)
  - Dysphoria [Recovering/Resolving]
  - Dizziness [Unknown]
  - Discomfort [Unknown]
  - Cold sweat [Recovering/Resolving]
  - Loss of consciousness [Recovered/Resolved]
  - Blood glucose decreased [Recovering/Resolving]

NARRATIVE: CASE EVENT DATE: 20250419
